FAERS Safety Report 10269596 (Version 1)
Quarter: 2014Q2

REPORT INFORMATION
  Report Type: Spontaneous
  Country: ES (occurrence: None)
  Receive Date: 20140624
  Receipt Date: 20140624
  Transmission Date: 20141212
  Serious: Yes (Hospitalization)
  Sender: FDA-Public Use
  Company Number: FK201402159

PATIENT
  Age: 17 Year
  Sex: Male

DRUGS (1)
  1. VOLUVEN [Suspect]
     Indication: FLUID REPLACEMENT
     Dosage: 250 ML, 1 IN 1 D, INTRAVENOUS (NOT OTHERWISE SPECIFIED)
     Route: 042
     Dates: start: 20140430

REACTIONS (1)
  - Renal failure acute [None]
